FAERS Safety Report 5310050-9 (Version None)
Quarter: 2007Q2

REPORT INFORMATION
  Report Type: 
  Country: None (occurrence: None)
  Receive Date: 20070427
  Receipt Date: 20070417
  Transmission Date: 20071010
  Serious: Yes (Hospitalization)
  Sender: FDA-Public Use
  Company Number: FR-GLAXOSMITHKLINE-B0464100A

PATIENT
  Age: 86 Year
  Sex: Male

DRUGS (6)
  1. ARIXTRA [Suspect]
     Indication: CARDIAC FAILURE
     Dosage: 7.5MG PER DAY
     Route: 058
     Dates: start: 20070111, end: 20070216
  2. TAHOR [Concomitant]
     Indication: DRUG USE FOR UNKNOWN INDICATION
     Route: 065
  3. LASIX [Concomitant]
     Indication: DRUG USE FOR UNKNOWN INDICATION
     Route: 065
  4. DIGOXIN [Concomitant]
     Indication: DRUG USE FOR UNKNOWN INDICATION
     Route: 065
  5. OMEPRAZOLE [Concomitant]
     Indication: DRUG USE FOR UNKNOWN INDICATION
     Route: 065
  6. XATRAL [Concomitant]
     Indication: DRUG USE FOR UNKNOWN INDICATION
     Route: 065

REACTIONS (10)
  - CARDIAC FAILURE ACUTE [None]
  - CEREBRAL HAEMATOMA [None]
  - CEREBRAL HAEMORRHAGE [None]
  - CONFUSIONAL STATE [None]
  - HAEMORRHAGIC STROKE [None]
  - OFF LABEL USE [None]
  - PNEUMONIA ASPIRATION [None]
  - QUADRIPARESIS [None]
  - SEPTIC SHOCK [None]
  - SOMNOLENCE [None]
